FAERS Safety Report 5264119-8 (Version None)
Quarter: 2007Q1

REPORT INFORMATION
  Report Type: 
  Country: None (occurrence: None)
  Receive Date: 20070313
  Receipt Date: 20070309
  Transmission Date: 20070707
  Serious: Yes (Hospitalization)
  Sender: FDA-Public Use
  Company Number: AU-BRISTOL-MYERS SQUIBB COMPANY-13708839

PATIENT
  Age: 78 Year
  Sex: Female

DRUGS (4)
  1. AVAPRO HCT [Suspect]
     Dosage: INITIAL DOSAGE WAS 1/2 A TABLET, WAS INCREASED TO 1 TABLET DAILY
     Route: 048
  2. SOTALOL HYDROCHLORIDE [Concomitant]
  3. DIGOXIN [Concomitant]
  4. WARFARIN SODIUM [Concomitant]

REACTIONS (2)
  - BLOOD PRESSURE INCREASED [None]
  - HEART RATE IRREGULAR [None]
